FAERS Safety Report 16819330 (Version 1)
Quarter: 2019Q3

REPORT INFORMATION
  Report Type: Spontaneous
  Country: US (occurrence: US)
  Receive Date: 20190917
  Receipt Date: 20190917
  Transmission Date: 20191005
  Serious: Yes (Hospitalization, Other)
  Sender: FDA-Public Use
  Company Number: US-TEVA-2019-US-1107407

PATIENT
  Age: 88 Year
  Sex: Female

DRUGS (3)
  1. SYNTHROID [Concomitant]
     Active Substance: LEVOTHYROXINE SODIUM
  2. METOPROLOL. [Suspect]
     Active Substance: METOPROLOL
     Indication: HYPERTENSION
     Dosage: SUCCINATE ER
     Dates: start: 201901
  3. METOPROLOL. [Suspect]
     Active Substance: METOPROLOL
     Dosage: 300 MILLIGRAM DAILY; TARTRATE

REACTIONS (3)
  - Blood pressure increased [Unknown]
  - Visual impairment [Unknown]
  - Treatment noncompliance [Unknown]

NARRATIVE: CASE EVENT DATE: 201901
